FAERS Safety Report 6764307-5 (Version None)
Quarter: 2010Q2

REPORT INFORMATION
  Report Type: 
  Country: None (occurrence: None)
  Receive Date: 20100608
  Receipt Date: 20100531
  Transmission Date: 20101027
  Serious: Yes (Death)
  Sender: FDA-Public Use
  Company Number: 1000013873

PATIENT
  Age: 64 Year
  Sex: Female

DRUGS (13)
  1. MEMANTINE HCL [Suspect]
     Dosage: 20 MG (10 MG, 2 IN  1 D),ORAL
     Route: 048
     Dates: start: 20091023
  2. PLAVIX [Suspect]
     Indication: VASCULAR DEMENTIA
     Dosage: 75 MG (75 MG, 1 IN 1 D),ORAL
     Route: 048
     Dates: start: 20081230, end: 20100429
  3. ASPIRIN [Suspect]
     Indication: VASCULAR DEMENTIA
     Dosage: 75 MG (75 MG, 1 IN 1 D),ORAL
     Route: 048
     Dates: start: 20090608
  4. ZOTON [Concomitant]
  5. SOLIAN [Concomitant]
  6. SERETIDE [Concomitant]
  7. REMINYL [Concomitant]
  8. MIRAP [Concomitant]
  9. LIPITOR [Concomitant]
  10. LAMACITAL [Concomitant]
  11. FOLIC ACID [Concomitant]
  12. EFFEXOR [Concomitant]
  13. CAMCOLIT [Suspect]

REACTIONS (1)
  - CEREBRAL HAEMORRHAGE [None]
